FAERS Safety Report 4756537-9 (Version None)
Quarter: 2005Q3

REPORT INFORMATION
  Report Type: 
  Country: None (occurrence: None)
  Receive Date: 20050830
  Receipt Date: 20050726
  Transmission Date: 20060218
  Serious: No
  Sender: FDA-Public Use
  Company Number: US-GLAXOSMITHKLINE-A0567755A

PATIENT
  Age: 50 Year
  Sex: Female

DRUGS (10)
  1. WELLBUTRIN XL [Suspect]
     Indication: FATIGUE
     Dosage: 300MG PER DAY
     Route: 048
     Dates: start: 20050601, end: 20050807
  2. PAROXETINE [Concomitant]
     Indication: DEPRESSION
     Dosage: 30MG PER DAY
     Route: 048
     Dates: start: 20041001, end: 20050601
  3. LEVOTHYROXINE [Concomitant]
  4. ESTROVEN [Concomitant]
  5. QVAR 40 [Concomitant]
  6. MULTI-VITAMIN [Concomitant]
  7. TUSSIONEX [Concomitant]
  8. METHYLPREDNISONE [Concomitant]
  9. TESSALON [Concomitant]
  10. PAXIL [Concomitant]
     Indication: DRUG USE FOR UNKNOWN INDICATION
     Route: 048

REACTIONS (6)
  - BRONCHIAL IRRITATION [None]
  - COUGH [None]
  - DRUG INEFFECTIVE [None]
  - INSOMNIA [None]
  - PAIN [None]
  - WHEEZING [None]
